FAERS Safety Report 22365955 (Version 1)
Quarter: 2023Q2

REPORT INFORMATION
  Report Type: Spontaneous
  Country: US (occurrence: US)
  Receive Date: 20230525
  Receipt Date: 20230525
  Transmission Date: 20230721
  Serious: Yes (Hospitalization, Other)
  Sender: FDA-Public Use
  Company Number: US-Indoco-000425

PATIENT
  Age: 39 Year
  Sex: Female

DRUGS (3)
  1. OLANZAPINE [Suspect]
     Active Substance: OLANZAPINE
     Indication: Bipolar disorder
     Dosage: 15 MG DAILY
  2. BISACODYL [Suspect]
     Active Substance: BISACODYL
     Indication: Constipation
     Dosage: SIX TABLETS
  3. CLONIDINE [Suspect]
     Active Substance: CLONIDINE
     Indication: Anxiety
     Dosage: 0.6 MG AT BEDTIME

REACTIONS (1)
  - Colitis ischaemic [Recovered/Resolved]
